FAERS Safety Report 23085224 (Version 1)
Quarter: 2023Q4

REPORT INFORMATION
  Report Type: Spontaneous
  Country: US (occurrence: US)
  Receive Date: 20231019
  Receipt Date: 20231019
  Transmission Date: 20240110
  Serious: No
  Sender: FDA-Public Use
  Company Number: US-BAYER-2023A141923

PATIENT
  Sex: Female

DRUGS (1)
  1. MIRENA [Suspect]
     Active Substance: LEVONORGESTREL
     Indication: Contraception
     Dosage: 20?G/DAY
     Route: 015
     Dates: start: 201907

REACTIONS (6)
  - Mood altered [None]
  - Sleep disorder [None]
  - Weight decreased [None]
  - Alopecia [None]
  - Menometrorrhagia [None]
  - Depression [None]
